FAERS Safety Report 24275821 (Version 2)
Quarter: 2025Q3

REPORT INFORMATION
  Report Type: Spontaneous
  Country: US (occurrence: US)
  Receive Date: 20240903
  Receipt Date: 20250905
  Transmission Date: 20251021
  Serious: Yes (Other)
  Sender: DOMPE FARMACEUTICI
  Company Number: US-FARMAPROD-202407-2575

PATIENT
  Sex: Female
  Weight: 62.6 kg

DRUGS (42)
  1. OXERVATE [Suspect]
     Active Substance: CENEGERMIN-BKBJ
     Indication: Neurotrophic keratopathy
     Route: 047
     Dates: start: 20240627
  2. OXERVATE [Suspect]
     Active Substance: CENEGERMIN-BKBJ
  3. ZAFIRLUKAST [Concomitant]
     Active Substance: ZAFIRLUKAST
  4. AMOXICILLIN-CLAVULANATE POTASS [Concomitant]
  5. LYRICA [Concomitant]
     Active Substance: PREGABALIN
  6. METAXALONE [Concomitant]
     Active Substance: METAXALONE
  7. GABAPENTIN [Concomitant]
     Active Substance: GABAPENTIN
  8. CEQUA [Concomitant]
     Active Substance: CYCLOSPORINE
  9. SIMBRINZA [Concomitant]
     Active Substance: BRIMONIDINE TARTRATE\BRINZOLAMIDE
  10. LEVOTHYROXINE SODIUM [Concomitant]
     Active Substance: LEVOTHYROXINE SODIUM
  11. PRIVIGEN [Concomitant]
     Active Substance: HUMAN IMMUNOGLOBULIN G
  12. LIDOCAINE [Concomitant]
     Active Substance: LIDOCAINE
  13. SODIUM CHLORIDE [Concomitant]
     Active Substance: SODIUM CHLORIDE
  14. DIPHENHYDRAMINE HYDROCHLORIDE [Concomitant]
     Active Substance: DIPHENHYDRAMINE HYDROCHLORIDE
  15. EPINEPHRINE [Concomitant]
     Active Substance: EPINEPHRINE
  16. SODIUM CHLORIDE [Concomitant]
     Active Substance: SODIUM CHLORIDE
  17. HEPARIN [Concomitant]
     Active Substance: HEPARIN SODIUM
  18. ZOFRAN [Concomitant]
     Active Substance: ONDANSETRON HYDROCHLORIDE
  19. ZYRTEC [Concomitant]
     Active Substance: CETIRIZINE HYDROCHLORIDE
  20. GEMTESA [Concomitant]
     Active Substance: VIBEGRON
  21. SPIRIVA RESPIMAT [Concomitant]
     Active Substance: TIOTROPIUM BROMIDE
  22. ELIQUIS [Concomitant]
     Active Substance: APIXABAN
  23. VITAMINS [Concomitant]
     Active Substance: VITAMINS
  24. ROSUVASTATIN CALCIUM [Concomitant]
     Active Substance: ROSUVASTATIN CALCIUM
  25. UBRELVY [Concomitant]
     Active Substance: UBROGEPANT
  26. OMEPRAZOLE [Concomitant]
     Active Substance: OMEPRAZOLE
  27. LEVOTHYROXINE SODIUM [Concomitant]
     Active Substance: LEVOTHYROXINE SODIUM
  28. EMGALITY [Concomitant]
     Active Substance: GALCANEZUMAB-GNLM
  29. DILTIAZEM [Concomitant]
     Active Substance: DILTIAZEM
  30. VITAMIN C [Concomitant]
     Active Substance: ASCORBIC ACID
  31. MAGNESIUM OXIDE [Concomitant]
     Active Substance: MAGNESIUM OXIDE
  32. METOPROLOL TARTRATE [Concomitant]
     Active Substance: METOPROLOL TARTRATE
  33. SPIRONOLACTONE [Concomitant]
     Active Substance: SPIRONOLACTONE
  34. ANTACID ULTRA STR [Concomitant]
  35. ASMANEX [Concomitant]
     Active Substance: MOMETASONE FUROATE
  36. PROLIA [Concomitant]
     Active Substance: DENOSUMAB
  37. PYRIDOXINE [Concomitant]
     Active Substance: PYRIDOXINE
  38. FAMOTIDINE [Concomitant]
     Active Substance: FAMOTIDINE
  39. VITAMIN D3 [Concomitant]
     Active Substance: CHOLECALCIFEROL
  40. ACETAMINOPHEN [Concomitant]
     Active Substance: ACETAMINOPHEN
  41. OPTASE EYE DROPS [Concomitant]
  42. AUTOLOGOUS HUMAN CORNEAL EPITHELIAL CELLS [Concomitant]
     Active Substance: AUTOLOGOUS HUMAN CORNEAL EPITHELIAL CELLS

REACTIONS (4)
  - Pneumonia [Recovering/Resolving]
  - Eye irritation [Unknown]
  - Vision blurred [Unknown]
  - Urinary tract infection [Not Recovered/Not Resolved]
